FAERS Safety Report 8956147 (Version 1)
Quarter: 2012Q4

REPORT INFORMATION
  Report Type: Report from Study
  Country: GR (occurrence: GR)
  Receive Date: 20121210
  Receipt Date: 20121210
  Transmission Date: 20130627
  Serious: Yes (Death, Hospitalization)
  Sender: FDA-Public Use
  Company Number: GR-SANOFI-AVENTIS-2009SA000615

PATIENT
  Age: 69 Year
  Sex: Male
  Weight: 71 kg

DRUGS (12)
  1. DOCETAXEL [Suspect]
     Indication: LUNG CANCER
     Route: 042
     Dates: start: 20090830, end: 20090830
  2. DOCETAXEL [Suspect]
     Indication: LUNG CANCER
     Route: 042
     Dates: start: 20090919, end: 20090919
  3. DOCETAXEL [Suspect]
     Indication: LUNG CANCER
     Route: 042
     Dates: start: 20091009, end: 20091009
  4. ERLOTINIB [Suspect]
     Indication: LUNG CANCER
     Route: 048
     Dates: start: 20090902, end: 20090913
  5. ERLOTINIB [Suspect]
     Indication: LUNG CANCER
     Route: 048
     Dates: start: 20090922, end: 20091003
  6. ERLOTINIB [Suspect]
     Indication: LUNG CANCER
     Route: 048
     Dates: start: 20091012, end: 20091013
  7. DILTIAZEM HYDROCHLORIDE [Concomitant]
     Indication: DILATATION ATRIAL
     Route: 048
     Dates: start: 20090827, end: 20091002
  8. RANITIDINE HYDROCHLORIDE [Concomitant]
     Indication: HEARTBURN
     Route: 048
     Dates: start: 20090901, end: 20090904
  9. DEXAMETHASONE [Concomitant]
     Route: 048
  10. TINZAPARIN SODIUM [Concomitant]
     Indication: PROPHYLAXIS
     Route: 058
     Dates: start: 20090830, end: 20091009
  11. LEVOCETIRIDINE DIHYDROCHLORIDE [Concomitant]
     Indication: PROPHYLAXIS
     Route: 048
     Dates: start: 20090829, end: 20091011
  12. G-CSF [Concomitant]
     Indication: WHITE BLOOD CELL COUNT ABNORMAL
     Route: 058
     Dates: start: 20091002, end: 20091004

REACTIONS (1)
  - Acute respiratory failure [Fatal]
